FAERS Safety Report 25316600 (Version 1)
Quarter: 2025Q2

REPORT INFORMATION
  Report Type: Spontaneous
  Country: IT (occurrence: IT)
  Receive Date: 20250515
  Receipt Date: 20250515
  Transmission Date: 20250717
  Serious: Yes (Hospitalization, Other)
  Sender: BRISTOL-MYERS SQUIBB COMPANY
  Company Number: None

PATIENT
  Age: 63 Year
  Sex: Male

DRUGS (2)
  1. NIVOLUMAB [Suspect]
     Active Substance: NIVOLUMAB
     Indication: Malignant melanoma
     Dosage: NIVOLUMAB 1 MG/KG EVERY 21 DAYS
     Route: 042
     Dates: start: 20250110, end: 20250221
  2. IPILIMUMAB [Suspect]
     Active Substance: IPILIMUMAB
     Indication: Malignant melanoma
     Dosage: IPILUMUMAB 3MG/KG EVERY 21 DAYS IN COMBINATION WITH NIVOLUMAB
     Route: 042
     Dates: start: 20250110, end: 20250221

REACTIONS (3)
  - Thrombocytopenia [Recovered/Resolved]
  - Diarrhoea [Recovered/Resolved]
  - Malaise [Recovered/Resolved]

NARRATIVE: CASE EVENT DATE: 20250327
